FAERS Safety Report 11967276 (Version 2)
Quarter: 2017Q2

REPORT INFORMATION
  Report Type: Spontaneous
  Country: US (occurrence: US)
  Receive Date: 20160127
  Receipt Date: 20170426
  Transmission Date: 20170829
  Serious: Yes (Other)
  Sender: FDA-Public Use
  Company Number: US-TEVA-628363USA

PATIENT
  Age: 9 Year
  Sex: Female

DRUGS (4)
  1. FLUTICASONE. [Concomitant]
     Active Substance: FLUTICASONE
  2. PROAIR HFA [Suspect]
     Active Substance: ALBUTEROL SULFATE
     Indication: ASTHMA
     Dosage: 1 PUFF
     Route: 055
  3. MONTELUKAST [Concomitant]
     Active Substance: MONTELUKAST SODIUM
  4. BENADRYL [Concomitant]
     Active Substance: DIPHENHYDRAMINE HYDROCHLORIDE

REACTIONS (10)
  - Tremor [Recovering/Resolving]
  - Dyspnoea [Recovering/Resolving]
  - Pyrexia [Recovering/Resolving]
  - Dyskinesia [Recovering/Resolving]
  - Myalgia [Recovering/Resolving]
  - Respiration abnormal [Recovering/Resolving]
  - Fatigue [Recovering/Resolving]
  - Dysstasia [Recovering/Resolving]
  - Abasia [Recovering/Resolving]
  - Ataxia [Recovered/Resolved]

NARRATIVE: CASE EVENT DATE: 20160114
